FAERS Safety Report 6683580-5 (Version None)
Quarter: 2010Q2

REPORT INFORMATION
  Report Type: 
  Country: None (occurrence: None)
  Receive Date: 20100413
  Receipt Date: 20100329
  Transmission Date: 20101027
  Serious: No
  Sender: FDA-Public Use
  Company Number: 008330

PATIENT
  Age: 47 Year
  Sex: Male
  Weight: 89 kg

DRUGS (11)
  1. PLETAL [Suspect]
     Indication: PERIPHERAL ARTERIAL OCCLUSIVE DISEASE
     Dosage: 100 MG,BID
     Route: 048
     Dates: start: 20090922, end: 20091210
  2. METOPROLOL [Concomitant]
  3. ENALAPRIL MALEATE [Concomitant]
  4. HYDROCHLOROTHIAZIDE [Concomitant]
  5. MOXONIDINE [Concomitant]
  6. AMLODIPINE [Concomitant]
  7. ACETYLSALICYLIC ACID [Concomitant]
  8. SPIRONOLACTONE [Concomitant]
  9. NIFEDIPINE [Concomitant]
  10. SIMVASTATIN [Concomitant]
  11. IBUPROFEN [Concomitant]

REACTIONS (3)
  - BLOOD CHOLESTEROL INCREASED [None]
  - BLOOD TRIGLYCERIDES INCREASED [None]
  - LIVER FUNCTION TEST ABNORMAL [None]
